FAERS Safety Report 7122020-9 (Version None)
Quarter: 2010Q4

REPORT INFORMATION
  Report Type: 
  Country: None (occurrence: None)
  Receive Date: 20101124
  Receipt Date: 20101119
  Transmission Date: 20110411
  Serious: Yes (Other)
  Sender: FDA-Public Use
  Company Number: A0894259A

PATIENT
  Age: 48 Year
  Sex: Female

DRUGS (6)
  1. CARVEDILOL [Suspect]
     Dosage: 6.25MG TWICE PER DAY
     Route: 048
     Dates: start: 20101109
  2. LISINOPRIL [Concomitant]
  3. FLEXERIL [Concomitant]
  4. ULTRAM [Concomitant]
  5. ATIVAN [Concomitant]
  6. KLONOPIN [Concomitant]

REACTIONS (12)
  - ARRHYTHMIA [None]
  - BLINDNESS [None]
  - BLOOD PRESSURE DECREASED [None]
  - CYANOSIS [None]
  - DIZZINESS [None]
  - DYSPNOEA [None]
  - HEART RATE DECREASED [None]
  - HYPERHIDROSIS [None]
  - HYPERTENSION [None]
  - ORTHOSTATIC HYPOTENSION [None]
  - RESPIRATORY RATE INCREASED [None]
  - SYNCOPE [None]
